FAERS Safety Report 21418515 (Version 3)
Quarter: 2022Q4

REPORT INFORMATION
  Report Type: Other
  Country: JP (occurrence: JP)
  Receive Date: 20221006
  Receipt Date: 20221104
  Transmission Date: 20230113
  Serious: Yes (Hospitalization, Other)
  Sender: FDA-Public Use
  Company Number: JP-CHUGAI-2021007250

PATIENT
  Age: 54 Year
  Sex: Male
  Weight: 61.5 kg

DRUGS (7)
  1. ATEZOLIZUMAB [Suspect]
     Active Substance: ATEZOLIZUMAB
     Indication: Non-small cell lung cancer
     Dosage: 1200 MILLIGRAM
     Route: 041
     Dates: start: 20210309
  2. BEVACIZUMAB [Suspect]
     Active Substance: BEVACIZUMAB
     Indication: Non-small cell lung cancer
     Dosage: 965 MILLIGRAM
     Route: 041
     Dates: start: 20210309
  3. BEVACIZUMAB [Suspect]
     Active Substance: BEVACIZUMAB
     Route: 041
  4. CARBOPLATIN [Suspect]
     Active Substance: CARBOPLATIN
     Indication: Non-small cell lung cancer
     Dosage: 360 MILLIGRAM
     Route: 041
     Dates: start: 20210309
  5. PACLITAXEL [Suspect]
     Active Substance: PACLITAXEL
     Indication: Non-small cell lung cancer
     Dosage: 260 MILLIGRAM
     Route: 041
     Dates: start: 20210309
  6. CARBOPLATIN [Concomitant]
     Active Substance: CARBOPLATIN
     Indication: Non-small cell lung cancer
     Dosage: 360 MILLIGRAM
     Route: 041
     Dates: start: 20210309
  7. PACLITAXEL [Concomitant]
     Active Substance: PACLITAXEL
     Indication: Non-small cell lung cancer
     Dosage: 260 MILLIGRAM
     Route: 041
     Dates: start: 20210309

REACTIONS (12)
  - Adrenal insufficiency [Not Recovered/Not Resolved]
  - Cholecystitis [Recovering/Resolving]
  - White blood cell count decreased [Recovered/Resolved]
  - Neutrophil count decreased [Recovered/Resolved]
  - Pancreatitis acute [Recovered/Resolved]
  - Neuropathy peripheral [Not Recovered/Not Resolved]
  - Malaise [Not Recovered/Not Resolved]
  - Epistaxis [Recovering/Resolving]
  - Constipation [Recovered/Resolved]
  - Hypertension [Recovering/Resolving]
  - Anaemia [Recovering/Resolving]
  - Platelet count decreased [Recovered/Resolved]

NARRATIVE: CASE EVENT DATE: 20210315
